FAERS Safety Report 7771202-1 (Version None)
Quarter: 2011Q3

REPORT INFORMATION
  Report Type: 
  Country: None (occurrence: None)
  Receive Date: 20110922
  Receipt Date: 20110315
  Transmission Date: 20111222
  Serious: No
  Sender: FDA-Public Use
  Company Number: US-ASTRAZENECA-2011SE14609

PATIENT
  Age: 44 Year
  Sex: Female
  Weight: 79.4 kg

DRUGS (4)
  1. SEROQUEL [Suspect]
     Indication: MANIA
     Route: 048
     Dates: start: 20110101
  2. AMBIEN [Concomitant]
  3. SEROQUEL [Suspect]
     Route: 048
     Dates: start: 20110101
  4. HALDOL [Concomitant]

REACTIONS (2)
  - ACNE CYSTIC [None]
  - ABDOMINAL PAIN UPPER [None]
